FAERS Safety Report 8851442 (Version 3)
Quarter: 2019Q4

REPORT INFORMATION
  Report Type: Spontaneous
  Country: BR (occurrence: BR)
  Receive Date: 20121022
  Receipt Date: 20191029
  Transmission Date: 20200122
  Serious: Yes (Other)
  Sender: FDA-Public Use
  Company Number: BR-AMGEN-BRASP2012046743

PATIENT
  Age: 46 Year
  Sex: Female
  Weight: 64 kg

DRUGS (8)
  1. SIMVASTATIN. [Concomitant]
     Active Substance: SIMVASTATIN
     Indication: BLOOD CHOLESTEROL
     Dosage: 20 MILLIGRAM
  2. CYCLOBENZAPRINE. [Concomitant]
     Active Substance: CYCLOBENZAPRINE
     Indication: HYPERTENSION
     Dosage: 10 MILLIGRAM
  3. CHONDROITIN [Concomitant]
     Active Substance: CHONDROITIN
     Dosage: UNK
  4. GLUCOSAMINE SULFATE [Concomitant]
     Active Substance: GLUCOSAMINE SULFATE
     Dosage: UNK
  5. ATENOPRESS [Concomitant]
     Active Substance: ATENOLOL
     Indication: HYPERTENSION
     Dosage: UNK
  6. CHLORTALIDONE [Concomitant]
     Active Substance: CHLORTHALIDONE
     Dosage: 2.5 MILLIGRAM
  7. ENBREL [Suspect]
     Active Substance: ETANERCEPT
     Indication: RHEUMATOID ARTHRITIS
     Dosage: 50 MG, ONCE WEEKLY
     Route: 058
     Dates: start: 20120612
  8. METHOTREXATE. [Concomitant]
     Active Substance: METHOTREXATE
     Indication: RHEUMATOID ARTHRITIS
     Dosage: UNK (2/5 MG STRENGTH)

REACTIONS (5)
  - Nasopharyngitis [Not Recovered/Not Resolved]
  - Dysuria [Unknown]
  - Product administration error [Unknown]
  - Urinary tract infection [Unknown]
  - Injection site pain [Unknown]

NARRATIVE: CASE EVENT DATE: 2012
